FAERS Safety Report 9170113 (Version 1)
Quarter: 2013Q1

REPORT INFORMATION
  Report Type: Spontaneous
  Country: US (occurrence: None)
  Receive Date: 20130314
  Receipt Date: 20130314
  Transmission Date: 20140127
  Serious: Yes (Hospitalization)
  Sender: FDA-Public Use
  Company Number: None

PATIENT
  Age: 17 Year
  Sex: Female

DRUGS (1)
  1. SEPTOCAINE\EPINEPHRINE [Suspect]
     Indication: DENTAL OPERATION
     Dates: start: 20121029, end: 20121029

REACTIONS (2)
  - Swollen tongue [None]
  - Glossodynia [None]
